FAERS Safety Report 7604619-6 (Version None)
Quarter: 2011Q3

REPORT INFORMATION
  Report Type: 
  Country: None (occurrence: None)
  Receive Date: 20110712
  Receipt Date: 20110704
  Transmission Date: 20111222
  Serious: Yes (Life-Threatening, Hospitalization)
  Sender: FDA-Public Use
  Company Number: PL-ABBOTT-11P-129-0836484-00

PATIENT
  Age: 33 Year
  Sex: Male

DRUGS (4)
  1. MYCOPHENOLATE MEFETIL [Suspect]
     Indication: IMMUNOSUPPRESSION
  2. PREDNISOLONE [Suspect]
     Indication: IMMUNOSUPPRESSION
  3. CYCLOSPORINE [Suspect]
     Indication: IMMUNOSUPPRESSION
  4. INSULIN [Concomitant]
     Indication: DIABETES MELLITUS

REACTIONS (1)
  - KAPOSI'S SARCOMA [None]
